FAERS Safety Report 20562630 (Version 1)
Quarter: 2022Q1

REPORT INFORMATION
  Report Type: Spontaneous
  Country: US (occurrence: US)
  Receive Date: 20220307
  Receipt Date: 20220307
  Transmission Date: 20220424
  Serious: Yes (Hospitalization, Other)
  Sender: FDA-Public Use
  Company Number: US-GILEAD-2022-0572230

PATIENT
  Age: 4 Year
  Sex: Male
  Weight: 14.9 kg

DRUGS (2)
  1. REMDESIVIR [Suspect]
     Active Substance: REMDESIVIR
     Indication: COVID-19 pneumonia
     Dosage: 5 MG/KG, 72 MG ONCE, LOADING DOSE
     Route: 042
     Dates: start: 20220128, end: 20220128
  2. REMDESIVIR [Suspect]
     Active Substance: REMDESIVIR
     Dosage: 5 MG/KG, 36 MG QD
     Route: 042
     Dates: start: 20220129, end: 20220130

REACTIONS (4)
  - Seizure [Recovered/Resolved]
  - Apnoea [Unknown]
  - Hypothermia [Unknown]
  - Mental status changes [Unknown]

NARRATIVE: CASE EVENT DATE: 20220225
